FAERS Safety Report 20037344 (Version 1)
Quarter: 2021Q4

REPORT INFORMATION
  Report Type: Spontaneous
  Country: US (occurrence: US)
  Receive Date: 20211105
  Receipt Date: 20211105
  Transmission Date: 20220303
  Serious: Yes (Death, Hospitalization)
  Sender: FDA-Public Use
  Company Number: None

PATIENT
  Age: 21 Year
  Sex: Female
  Weight: 76 kg

DRUGS (3)
  1. ACETAMINOPHEN [Suspect]
     Active Substance: ACETAMINOPHEN
     Indication: Product used for unknown indication
     Dosage: TOTAL DOSE 14000 MG OF ACETAMINOPHEN ON 02-JUN-1999 AT 02:00
     Route: 048
  2. DIPHENHYDRAMINE HYDROCHLORIDE [Suspect]
     Active Substance: DIPHENHYDRAMINE HYDROCHLORIDE
     Indication: Product used for unknown indication
     Dosage: TOTAL DOSE 700 MG OF DIPHENHYDRAMINE HYDROCHLORIDE ON 02-JUN-1999
     Route: 065
  3. PIROXICAM [Concomitant]
     Active Substance: PIROXICAM
     Indication: Product used for unknown indication
     Dosage: 20 MG/DAY FOR 14 DAYS
     Route: 065
     Dates: end: 19990529

REACTIONS (7)
  - Brain herniation [Fatal]
  - Subarachnoid haemorrhage [Fatal]
  - Arrhythmia [Fatal]
  - Haemodynamic instability [Fatal]
  - Accidental overdose [Fatal]
  - Acute hepatic failure [Fatal]
  - Acute respiratory distress syndrome [Fatal]
